FAERS Safety Report 8520357-X (Version None)
Quarter: 2012Q3

REPORT INFORMATION
  Report Type: 
  Country: None (occurrence: None)
  Receive Date: 20120719
  Receipt Date: 20120712
  Transmission Date: 20120928
  Serious: Yes (Death)
  Sender: FDA-Public Use
  Company Number: IE-MILLENNIUM PHARMACEUTICALS, INC.-2012-04931

PATIENT

DRUGS (7)
  1. VALTREX [Concomitant]
     Dosage: 500 MG, UNK
  2. VELCADE [Suspect]
     Indication: MULTIPLE MYELOMA
     Dosage: 1 MG/M2, UNK
     Dates: start: 20091020
  3. LOSEC                              /00661201/ [Concomitant]
  4. PANADOL                            /00020001/ [Concomitant]
     Dosage: 1 G, UNK
  5. DEXAMETHASONE [Concomitant]
     Dosage: 20 MG, UNK
  6. ALLOPURINOL [Concomitant]
     Dosage: 300 MG, UNK
  7. ASPIRIN [Concomitant]
     Dosage: 75 MG, UNK

REACTIONS (1)
  - DEATH [None]
